FAERS Safety Report 10089135 (Version 1)
Quarter: 2014Q2

REPORT INFORMATION
  Report Type: Spontaneous
  Country: TR (occurrence: TR)
  Receive Date: 20140421
  Receipt Date: 20140421
  Transmission Date: 20141212
  Serious: Yes (Hospitalization)
  Sender: FDA-Public Use
  Company Number: TR-ROCHE-1383257

PATIENT
  Age: 32 Year
  Sex: Male

DRUGS (2)
  1. INTERFERON ALFA-2A [Suspect]
     Indication: HEPATITIS C
     Dosage: 5 MILLION U
     Route: 065
     Dates: start: 199707
  2. INTERFERON ALFA-2A [Suspect]
     Dosage: 5 MILLION U/DAY
     Route: 065
     Dates: start: 199812

REACTIONS (1)
  - Glomerulonephritis minimal lesion [Recovered/Resolved]
